FAERS Safety Report 15543218 (Version 1)
Quarter: 2018Q4

REPORT INFORMATION
  Report Type: Spontaneous
  Country: BG (occurrence: BG)
  Receive Date: 20181023
  Receipt Date: 20181023
  Transmission Date: 20190205
  Serious: Yes (Other)
  Sender: FDA-Public Use
  Company Number: BG-TAKEDA-2018TUS030702

PATIENT
  Sex: Male

DRUGS (5)
  1. ADENURIC [Suspect]
     Active Substance: FEBUXOSTAT
     Indication: GOUT
     Dosage: 80 MG, QD
     Route: 048
     Dates: start: 201807, end: 2018
  2. NOLIPREL BI FORTE [Concomitant]
     Indication: HYPERTENSION
     Dosage: 5 MG/12.5 MG, QD
     Route: 048
  3. ADENURIC [Suspect]
     Active Substance: FEBUXOSTAT
     Dosage: UNK
     Route: 048
     Dates: start: 2018
  4. ADENURIC [Suspect]
     Active Substance: FEBUXOSTAT
     Dosage: 60 MG, QOD
     Route: 048
     Dates: start: 2018, end: 201810
  5. NEBILET [Concomitant]
     Active Substance: NEBIVOLOL
     Indication: HYPERTENSION
     Dosage: 5 MG, QD
     Route: 048

REACTIONS (5)
  - Photopsia [Recovered/Resolved]
  - Product use issue [Not Recovered/Not Resolved]
  - Feeling hot [Recovered/Resolved]
  - Dizziness [Recovered/Resolved]
  - Wrong technique in product usage process [Not Recovered/Not Resolved]

NARRATIVE: CASE EVENT DATE: 201807
